FAERS Safety Report 21539985 (Version 1)
Quarter: 2022Q4

REPORT INFORMATION
  Report Type: Spontaneous
  Country: US (occurrence: None)
  Receive Date: 20221101
  Receipt Date: 20221101
  Transmission Date: 20230113
  Serious: No
  Sender: FDA-Public Use
  Company Number: None

PATIENT

DRUGS (2)
  1. DEFERASIROX [Suspect]
     Active Substance: DEFERASIROX
  2. DEFERIPRONE [Suspect]
     Active Substance: DEFERIPRONE

REACTIONS (2)
  - Product name confusion [None]
  - Product name confusion [None]
